FAERS Safety Report 22626337 (Version 1)
Quarter: 2023Q2

REPORT INFORMATION
  Report Type: Spontaneous
  Country: PL (occurrence: PL)
  Receive Date: 20230621
  Receipt Date: 20230621
  Transmission Date: 20230721
  Serious: Yes (Hospitalization)
  Sender: FDA-Public Use
  Company Number: PL-MYLANLABS-2023M1064463

PATIENT
  Age: 61 Year
  Sex: Male

DRUGS (6)
  1. SERTRALINE [Suspect]
     Active Substance: SERTRALINE HYDROCHLORIDE
     Indication: Conversion disorder
     Dosage: 100 MILLIGRAM, QD
     Route: 065
  2. VENLAFAXINE [Suspect]
     Active Substance: VENLAFAXINE HYDROCHLORIDE
     Indication: Conversion disorder
     Dosage: UNK
     Route: 065
  3. CITALOPRAM [Concomitant]
     Active Substance: CITALOPRAM HYDROBROMIDE
     Indication: Conversion disorder
     Dosage: 20 MILLIGRAM, QD
     Route: 065
  4. SULPIRIDE [Concomitant]
     Active Substance: SULPIRIDE
     Indication: Conversion disorder
     Dosage: 100 MILLIGRAM, QD
     Route: 065
  5. PAROXETINE [Concomitant]
     Active Substance: PAROXETINE
     Indication: Conversion disorder
     Dosage: 20 MILLIGRAM, QD (20 MG ONCE DAILY IN THE MORNING)
     Route: 065
  6. RISPERIDONE [Concomitant]
     Active Substance: RISPERIDONE
     Indication: Conversion disorder
     Dosage: 2 MILLIGRAM, QD (2 MG ONCE DAILY IN THE EVENING)
     Route: 065

REACTIONS (1)
  - Drug ineffective [Unknown]
